FAERS Safety Report 6268531-X (Version None)
Quarter: 2009Q3

REPORT INFORMATION
  Report Type: 
  Country: None (occurrence: None)
  Receive Date: 20090715
  Receipt Date: 20090701
  Transmission Date: 20100115
  Serious: Yes (Other)
  Sender: FDA-Public Use
  Company Number: JP-BRISTOL-MYERS SQUIBB COMPANY-14694400

PATIENT
  Age: 40 Year
  Sex: Male
  Weight: 51 kg

DRUGS (10)
  1. ABILIFY [Suspect]
     Indication: SCHIZOPHRENIA
     Dosage: 29MAY08-11JUN08(6MG);12-25JUN08(12MG);26JUN-09JUL09(18MG)CONTINUED WITH VARING DOSES;STOPPED13-JAN09
     Route: 048
     Dates: start: 20080529, end: 20090113
  2. BIPERIDEN HYDROCHLORIDE TAB [Concomitant]
     Dates: end: 20081001
  3. LEVOTOMIN [Concomitant]
     Dates: end: 20090128
  4. ISOMYTAL [Concomitant]
     Dosage: ISOMYTAL POWDER
  5. BROMVALERYLUREA [Concomitant]
     Dosage: BROMVALERYLUREA POWDER
  6. RISPERDAL [Concomitant]
     Dosage: TAKEN ON 02OCT08(3MG/D);15OCT08 DOSE INCREASED TO (6MG/D);18OCT08(9MG)
     Dates: start: 20070426, end: 20080918
  7. CONTOMIN [Concomitant]
     Dates: start: 20070426
  8. FLUNITRAZEPAM [Concomitant]
     Dosage: TABS
     Dates: start: 20070726
  9. BROTIZOLAM [Concomitant]
     Dosage: TABS
     Dates: start: 20080529
  10. SUCRALFATE [Concomitant]
     Dosage: GRANULE
     Dates: start: 20080529

REACTIONS (5)
  - CATATONIA [None]
  - DELUSION [None]
  - EXTRAPYRAMIDAL DISORDER [None]
  - HALLUCINATION [None]
  - INFECTION [None]
